FAERS Safety Report 5170169-2 (Version None)
Quarter: 2006Q4

REPORT INFORMATION
  Report Type: 
  Country: None (occurrence: None)
  Receive Date: 20061204
  Receipt Date: 20061122
  Transmission Date: 20070319
  Serious: Yes (Other)
  Sender: FDA-Public Use
  Company Number: 2006145464

PATIENT
  Age: 75 Year
  Sex: Male

DRUGS (4)
  1. XALATAN [Suspect]
     Indication: GLAUCOMA
     Dosage: 1 DROP (1 DROP, 1 IN 1 D)
     Dates: start: 20000101
  2. AZOPT [Concomitant]
  3. DRUG, UNSPECIFIED (DRUG, UNSPECIFIED) [Concomitant]
  4. TIMOLOL MALEATE [Concomitant]

REACTIONS (3)
  - BLINDNESS [None]
  - CONDITION AGGRAVATED [None]
  - GLAUCOMA [None]
